FAERS Safety Report 10082135 (Version 1)
Quarter: 2014Q2

REPORT INFORMATION
  Report Type: Spontaneous
  Country: FR (occurrence: FR)
  Receive Date: 20140416
  Receipt Date: 20140416
  Transmission Date: 20141212
  Serious: Yes (Hospitalization)
  Sender: FDA-Public Use
  Company Number: FR-ABBVIE-14P-056-1226241-00

PATIENT
  Age: 26 Year
  Sex: Female

DRUGS (2)
  1. DEPAKOTE [Suspect]
     Indication: AGITATION
     Route: 048
     Dates: start: 20140114, end: 20140114
  2. ZYPREXA [Suspect]
     Indication: AGITATION
     Route: 048
     Dates: start: 20140114, end: 20140114

REACTIONS (4)
  - Poisoning [Recovered/Resolved]
  - Lung disorder [Recovered/Resolved]
  - Coma [Recovered/Resolved]
  - Suicide attempt [Recovered/Resolved]
